FAERS Safety Report 6542805-7 (Version None)
Quarter: 2010Q1

REPORT INFORMATION
  Report Type: 
  Country: None (occurrence: None)
  Receive Date: 20100114
  Receipt Date: 20100107
  Transmission Date: 20100710
  Serious: Yes (Death, Hospitalization)
  Sender: FDA-Public Use
  Company Number: 004036

PATIENT
  Sex: Female

DRUGS (1)
  1. VIMPAT [Suspect]
     Dates: start: 20091223

REACTIONS (1)
  - SEPSIS [None]
